FAERS Safety Report 6947300-9 (Version None)
Quarter: 2010Q3

REPORT INFORMATION
  Report Type: 
  Country: None (occurrence: None)
  Receive Date: 20100827
  Receipt Date: 20090901
  Transmission Date: 20110219
  Serious: No
  Sender: FDA-Public Use
  Company Number: US-ABBOTT-09P-163-0595584-00

PATIENT
  Sex: Female
  Weight: 64.468 kg

DRUGS (6)
  1. NIASPAN [Suspect]
     Indication: HIGH DENSITY LIPOPROTEIN DECREASED
     Route: 048
     Dates: start: 20090701, end: 20090828
  2. NIASPAN [Suspect]
     Route: 048
     Dates: start: 20090828
  3. FERHERT [Concomitant]
     Indication: HORMONE REPLACEMENT THERAPY
     Route: 048
  4. SOLODINE [Concomitant]
     Indication: SKIN DISORDER
     Route: 048
  5. SOLODINE [Concomitant]
     Indication: ACNE
  6. ASPIRIN [Concomitant]
     Indication: PRODUCT USED FOR UNKNOWN INDICATION
     Route: 048

REACTIONS (3)
  - FLUSHING [None]
  - PRURITUS [None]
  - RASH [None]
